FAERS Safety Report 20593285 (Version 1)
Quarter: 2022Q1

REPORT INFORMATION
  Report Type: Report from Study
  Country: CA (occurrence: CA)
  Receive Date: 20220315
  Receipt Date: 20220315
  Transmission Date: 20220423
  Serious: Yes (Other)
  Sender: FDA-Public Use
  Company Number: CA-JNJFOC-20220322647

PATIENT
  Sex: Male
  Weight: 76.2 kg

DRUGS (1)
  1. REMICADE [Suspect]
     Active Substance: INFLIXIMAB
     Indication: Crohn^s disease
     Dosage: THE PATIENT RECEIVED RECENT DOSE ON 08-MAR-2022
     Route: 042
     Dates: start: 20190308

REACTIONS (1)
  - Chemotherapy [Unknown]
